FAERS Safety Report 19970382 (Version 1)
Quarter: 2021Q4

REPORT INFORMATION
  Report Type: Spontaneous
  Country: US (occurrence: US)
  Receive Date: 20211019
  Receipt Date: 20211019
  Transmission Date: 20220303
  Serious: Yes (Other)
  Sender: FDA-Public Use
  Company Number: US-ORGANON-O2110USA001697

PATIENT
  Sex: Male

DRUGS (3)
  1. REMERON [Interacting]
     Active Substance: MIRTAZAPINE
     Dosage: UNK
  2. OPICAPONE [Interacting]
     Active Substance: OPICAPONE
     Dosage: UNK
  3. CLONAZEPAM [Interacting]
     Active Substance: CLONAZEPAM
     Dosage: UNK

REACTIONS (3)
  - Sudden onset of sleep [Unknown]
  - Drug interaction [Unknown]
  - Sedation [Unknown]
